FAERS Safety Report 12266911 (Version 1)
Quarter: 2016Q2

REPORT INFORMATION
  Report Type: Spontaneous
  Country: DE (occurrence: DE)
  Receive Date: 20160414
  Receipt Date: 20160414
  Transmission Date: 20160815
  Serious: Yes (Other)
  Sender: FDA-Public Use
  Company Number: DE-AUROBINDO-AUR-APL-2016-04851

PATIENT
  Age: 8 Month
  Sex: Female
  Weight: 72 kg

DRUGS (6)
  1. FSME-IMMUN [Concomitant]
     Indication: IMMUNISATION
     Dosage: UNK
     Route: 030
     Dates: start: 20150529, end: 20150611
  2. CYTOTEC [Concomitant]
     Active Substance: MISOPROSTOL
     Indication: LABOUR INDUCTION
     Dosage: UNK
     Route: 048
     Dates: start: 20150720, end: 20150720
  3. LAMOTRIGINE 200MG [Suspect]
     Active Substance: LAMOTRIGINE
     Indication: BIPOLAR DISORDER
     Dosage: 200 MG, ONCE A DAY
     Route: 048
     Dates: start: 20141109, end: 20150721
  4. VENLAFAXINE [Suspect]
     Active Substance: VENLAFAXINE HYDROCHLORIDE
     Indication: DEPRESSION
     Dosage: 300 MG, ONCE A DAY
     Route: 048
     Dates: start: 20141109, end: 20150721
  5. L-THYROX [Concomitant]
     Active Substance: LEVOTHYROXINE SODIUM
     Indication: HYPOTHYROIDISM
     Dosage: 50 ?G, DAILY
     Route: 048
  6. CEFUROXIM                          /00454602/ [Concomitant]
     Active Substance: CEFUROXIME
     Indication: INFECTION PROPHYLAXIS
     Dosage: 1.5 G, 3 TIMES A DAY
     Route: 048
     Dates: start: 20150720, end: 20150721

REACTIONS (2)
  - Exposure during pregnancy [Unknown]
  - Premature rupture of membranes [Unknown]

NARRATIVE: CASE EVENT DATE: 20150721
